FAERS Safety Report 23677451 (Version 1)
Quarter: 2024Q1

REPORT INFORMATION
  Report Type: Spontaneous
  Country: US (occurrence: US)
  Receive Date: 20240327
  Receipt Date: 20240327
  Transmission Date: 20240410
  Serious: No
  Sender: FDA-Public Use
  Company Number: US-PERRIGO-23US003422

PATIENT
  Age: 12 Year
  Sex: Male
  Weight: 71.655 kg

DRUGS (2)
  1. FEXOFENADINE HYDROCHLORIDE [Suspect]
     Active Substance: FEXOFENADINE HYDROCHLORIDE
     Indication: Perennial allergy
     Dosage: 180 MG, QD
     Route: 048
     Dates: start: 202302, end: 20230311
  2. FEXOFENADINE HYDROCHLORIDE [Suspect]
     Active Substance: FEXOFENADINE HYDROCHLORIDE
     Dosage: 180 MG, QD
     Route: 048
     Dates: start: 202211, end: 202302

REACTIONS (4)
  - Condition aggravated [Not Recovered/Not Resolved]
  - Urticaria [Not Recovered/Not Resolved]
  - Exposure to unspecified agent [Recovered/Resolved]
  - Therapeutic product effect decreased [Unknown]

NARRATIVE: CASE EVENT DATE: 20230201
